FAERS Safety Report 8069619-3 (Version None)
Quarter: 2012Q1

REPORT INFORMATION
  Report Type: 
  Country: None (occurrence: None)
  Receive Date: 20120125
  Receipt Date: 20120120
  Transmission Date: 20120608
  Serious: Yes (Other)
  Sender: FDA-Public Use
  Company Number: US-BAYER-2012-007339

PATIENT
  Age: 52 Year
  Sex: Female
  Weight: 65.2 kg

DRUGS (4)
  1. SORAFENIB (RAF KINASE INHIBITOR) [Suspect]
     Dosage: 200 MG, BID
     Route: 048
     Dates: start: 20110309, end: 20110412
  2. EVEROLIMUS [Suspect]
     Indication: DIFFUSE LARGE B-CELL LYMPHOMA
     Dosage: 5 MG, QD EVERY 28 DAYS
     Route: 048
     Dates: start: 20090723, end: 20100206
  3. IBRITUMOMAB TIUXETAN + YTTRIUM (90 Y) [Suspect]
     Indication: DIFFUSE LARGE B-CELL LYMPHOMA
     Dosage: UNK
     Dates: start: 20031101
  4. SORAFENIB (RAF KINASE INHIBITOR) [Suspect]
     Indication: DIFFUSE LARGE B-CELL LYMPHOMA
     Dosage: 200 MG, BID EVERY 28 DAYS
     Route: 048
     Dates: start: 20090723

REACTIONS (1)
  - MYELODYSPLASTIC SYNDROME [None]
